FAERS Safety Report 5118111-4 (Version None)
Quarter: 2006Q4

REPORT INFORMATION
  Report Type: 
  Country: None (occurrence: None)
  Receive Date: 20061002
  Receipt Date: 20060918
  Transmission Date: 20070319
  Serious: Yes (Death, Other)
  Sender: FDA-Public Use
  Company Number: US-JNJFOC-20060904535

PATIENT
  Sex: Male
  Weight: 76.02 kg

DRUGS (4)
  1. REOPRO [Suspect]
     Route: 042
  2. REOPRO [Suspect]
     Indication: INTRACARDIAC THROMBUS
     Route: 042
  3. BIVALIRUDIN [Suspect]
     Route: 042
  4. BIVALIRUDIN [Suspect]
     Indication: PERCUTANEOUS CORONARY INTERVENTION
     Route: 042

REACTIONS (6)
  - CARDIOGENIC SHOCK [None]
  - GASTROINTESTINAL HAEMORRHAGE [None]
  - RESPIRATORY FAILURE [None]
  - THROMBOCYTOPENIA [None]
  - UROGENITAL HAEMORRHAGE [None]
  - VENTRICULAR ARRHYTHMIA [None]
